FAERS Safety Report 5657692-9 (Version None)
Quarter: 2008Q1

REPORT INFORMATION
  Report Type: 
  Country: None (occurrence: None)
  Receive Date: 20080310
  Receipt Date: 20080214
  Transmission Date: 20080703
  Serious: No
  Sender: FDA-Public Use
  Company Number: US-BOEHRINGER INGELHEIM GMBH, GERMANY-2008-BP-02316BP

PATIENT
  Age: 50 Year
  Sex: Female

DRUGS (6)
  1. ZANTAC 150 [Suspect]
     Indication: GASTROOESOPHAGEAL REFLUX DISEASE
     Route: 048
     Dates: start: 19940101
  2. LEVSIN [Concomitant]
  3. TYLENOL (CAPLET) [Concomitant]
  4. MAALOX [Concomitant]
  5. PEPTO BISMOL [Concomitant]
  6. ACIPHEX [Concomitant]

REACTIONS (1)
  - NAUSEA [None]
